FAERS Safety Report 26011566 (Version 1)
Quarter: 2025Q4

REPORT INFORMATION
  Report Type: Spontaneous
  Country: US (occurrence: None)
  Receive Date: 20251106
  Receipt Date: 20251106
  Transmission Date: 20260118
  Serious: Yes (Other)
  Sender: FDA-CTU
  Company Number: None

PATIENT
  Age: 19 Year
  Sex: Female
  Weight: 70.65 kg

DRUGS (1)
  1. RETATRUTIDE [Suspect]
     Active Substance: RETATRUTIDE
     Indication: Product use in unapproved indication
     Dates: start: 20251001, end: 20251101

REACTIONS (5)
  - Product use issue [None]
  - Abdominal pain [None]
  - Nausea [None]
  - Burning sensation [None]
  - Therapy cessation [None]

NARRATIVE: CASE EVENT DATE: 20251106
